FAERS Safety Report 25386546 (Version 2)
Quarter: 2025Q2

REPORT INFORMATION
  Report Type: Spontaneous
  Country: US (occurrence: US)
  Receive Date: 20250602
  Receipt Date: 20250625
  Transmission Date: 20250717
  Serious: No
  Sender: SANOFI AVENTIS
  Company Number: US-SA-2025SA155758

PATIENT
  Age: 53 Year
  Sex: Female

DRUGS (3)
  1. DUPIXENT [Suspect]
     Active Substance: DUPILUMAB
     Indication: Asthma
     Dosage: 300 MG, QOW
     Route: 058
     Dates: start: 20200609
  2. PREDNISONE [Concomitant]
     Active Substance: PREDNISONE
  3. XOLAIR [Concomitant]
     Active Substance: OMALIZUMAB

REACTIONS (13)
  - Nausea [Unknown]
  - Impaired quality of life [Unknown]
  - Fatigue [Unknown]
  - Infection [Unknown]
  - Myalgia [Unknown]
  - Headache [Unknown]
  - Oropharyngeal pain [Unknown]
  - Oral herpes [Unknown]
  - Injection site reaction [Unknown]
  - Eye irritation [Unknown]
  - Asthma [Unknown]
  - Dyspnoea [Unknown]
  - Drug ineffective [Unknown]

NARRATIVE: CASE EVENT DATE: 20250401
